FAERS Safety Report 9707740 (Version 1)
Quarter: 2013Q4

REPORT INFORMATION
  Report Type: Spontaneous
  Country: AU (occurrence: None)
  Receive Date: 20131121
  Receipt Date: 20131121
  Transmission Date: 20140711
  Serious: Yes (Other)
  Sender: FDA-Public Use
  Company Number: AUR-APL-2013-09550

PATIENT
  Sex: Female

DRUGS (2)
  1. MIRTAZAPINE (MIRTAZAPINE) [Suspect]
     Indication: PRODUCT USED FOR UNKNOWN INDICATION
     Dates: start: 201310, end: 2013
  2. ZOLOFT (SERTRALINE HYDROCHLORIDE) [Suspect]
     Dates: start: 201308, end: 2013

REACTIONS (2)
  - Muscular weakness [None]
  - Serotonin syndrome [None]
